FAERS Safety Report 19838827 (Version 1)
Quarter: 2021Q3

REPORT INFORMATION
  Report Type: Spontaneous
  Country: US (occurrence: US)
  Receive Date: 20210915
  Receipt Date: 20210915
  Transmission Date: 20211014
  Serious: Yes (Other)
  Sender: FDA-Public Use
  Company Number: US-PFIZER INC-202101190878

PATIENT
  Age: 69 Year
  Sex: Male
  Weight: 97.52 kg

DRUGS (1)
  1. CHANTIX [Suspect]
     Active Substance: VARENICLINE TARTRATE
     Dosage: UNKNOWN DOSE

REACTIONS (3)
  - Neoplasm malignant [Unknown]
  - Acute myeloid leukaemia [Unknown]
  - Drug ineffective [Unknown]
